FAERS Safety Report 25477103 (Version 3)
Quarter: 2025Q3

REPORT INFORMATION
  Report Type: Report from Study
  Country: US (occurrence: US)
  Receive Date: 20250625
  Receipt Date: 20250819
  Transmission Date: 20251020
  Serious: No
  Sender: SUNOVION
  Company Number: US-SMPA-2025SPA007104AA

PATIENT
  Age: 79 Year
  Sex: Male

DRUGS (19)
  1. ORGOVYX [Suspect]
     Active Substance: RELUGOLIX
     Indication: Prostate cancer
     Dosage: 360 MG, SINGLE
     Route: 048
     Dates: start: 202502, end: 202502
  2. ORGOVYX [Suspect]
     Active Substance: RELUGOLIX
     Dosage: 120 MG, QD
     Route: 048
     Dates: start: 202502
  3. AMANTADINE [Concomitant]
     Active Substance: AMANTADINE
  4. COENZYME Q10 [Concomitant]
     Active Substance: DIETARY SUPPLEMENT\UBIDECARENONE
  5. ELIQUIS [Concomitant]
     Active Substance: APIXABAN
  6. FEXOFENADINE [Concomitant]
     Active Substance: FEXOFENADINE HYDROCHLORIDE
  7. FINASTERIDE [Concomitant]
     Active Substance: FINASTERIDE
  8. FLECAINIDE ACETATE [Concomitant]
     Active Substance: FLECAINIDE ACETATE
  9. FLONASE [Concomitant]
     Active Substance: FLUTICASONE PROPIONATE
     Route: 045
  10. METOPROLOL SUCCINATE [Concomitant]
     Active Substance: METOPROLOL SUCCINATE
  11. VITAMINS [Concomitant]
     Active Substance: VITAMINS
  12. PRAVASTATIN [Concomitant]
     Active Substance: PRAVASTATIN
  13. RASAGILINE [Concomitant]
     Active Substance: RASAGILINE
  14. SINEMET [Concomitant]
     Active Substance: CARBIDOPA\LEVODOPA
  15. IRON [Concomitant]
     Active Substance: IRON
  16. VITAMIN C [Concomitant]
     Active Substance: ASCORBIC ACID
  17. VITAMIN B COMPLEX NOS [Concomitant]
     Active Substance: CYANOCOBALAMIN\PYRIDOXINE HYDROCHLORIDE\RIBOFLAVIN\SODIUM PANTOTHENATE\THIAMINE HYDROCHLORIDE\VITAMI
  18. CLINDAMYCIN [Concomitant]
     Active Substance: CLINDAMYCIN
  19. ALLEGRA [Concomitant]
     Active Substance: FEXOFENADINE HYDROCHLORIDE

REACTIONS (7)
  - Muscle atrophy [Unknown]
  - Muscle spasms [Unknown]
  - Muscular weakness [Unknown]
  - Weight decreased [Unknown]
  - Urinary tract infection [Unknown]
  - Myalgia [Unknown]
  - Hot flush [Unknown]
